FAERS Safety Report 6076322-8 (Version None)
Quarter: 2009Q1

REPORT INFORMATION
  Report Type: 
  Country: None (occurrence: None)
  Receive Date: 20090209
  Receipt Date: 20090128
  Transmission Date: 20090719
  Serious: Yes (Death)
  Sender: FDA-Public Use
  Company Number: KV200900143

PATIENT
  Age: 61 Year
  Sex: Male

DRUGS (2)
  1. MORPHINE SULFATE [Suspect]
     Indication: PAIN
     Dosage: 15 MG, QID, ORAL
     Route: 048
     Dates: start: 20080101
  2. MORPHINE SULFATE [Suspect]
     Indication: PAIN
     Dosage: 15 MG, Q6H, ORAL
     Route: 048
     Dates: start: 20080101

REACTIONS (4)
  - DISEASE PROGRESSION [None]
  - HEPATIC CIRRHOSIS [None]
  - HEPATITIS C [None]
  - PRODUCT QUALITY ISSUE [None]
